FAERS Safety Report 17797592 (Version 3)
Quarter: 2020Q3

REPORT INFORMATION
  Report Type: Spontaneous
  Country: DE (occurrence: DE)
  Receive Date: 20200518
  Receipt Date: 20200709
  Transmission Date: 20201102
  Serious: Yes (Life-Threatening, Hospitalization, Other)
  Sender: FDA-Public Use
  Company Number: DE-MYLANLABS-2020M1048574

PATIENT
  Age: 52 Year
  Sex: Female
  Weight: 90 kg

DRUGS (11)
  1. NOVAMINSULFON [Concomitant]
     Active Substance: METAMIZOLE
     Indication: PAIN
     Dosage: 500 MILLIGRAM (BEI BEDARF)
     Route: 048
     Dates: end: 201906
  2. PARACETAMOL [Concomitant]
     Active Substance: ACETAMINOPHEN
     Indication: PAIN
     Dosage: 500 MILLIGRAM, PRN (BEI BEDARF)
     Route: 048
     Dates: start: 201907
  3. BISOPROLOL [Concomitant]
     Active Substance: BISOPROLOL
     Indication: TACHYCARDIA
     Dosage: 1.25 MILLIGRAM
     Route: 048
     Dates: start: 20190529
  4. MYCOPHENOLATE MOFETIL. [Suspect]
     Active Substance: MYCOPHENOLATE MOFETIL
     Indication: RENAL TRANSPLANT
     Dosage: 500 MILLIGRAM
     Route: 048
     Dates: start: 201905, end: 20191212
  5. PROGRAF [Concomitant]
     Active Substance: TACROLIMUS
     Indication: RENAL TRANSPLANT
     Dosage: UNK (DOSIERUNG NACH TALSPIEGEL)
     Route: 048
     Dates: start: 201905
  6. CLOPIDOGREL [Suspect]
     Active Substance: CLOPIDOGREL BISULFATE
     Indication: STENT PLACEMENT
     Dosage: 75 MILLIGRAM
     Route: 048
     Dates: start: 20181105, end: 20200122
  7. COTRIM [Suspect]
     Active Substance: SULFAMETHOXAZOLE\TRIMETHOPRIM
     Indication: PROPHYLAXIS
     Dosage: 2880 MILLIGRAM, QW (3 SEPARATED DOSES)
     Route: 048
     Dates: start: 201905, end: 201911
  8. CYMEVEN                            /00784202/ [Concomitant]
     Indication: ANTIVIRAL PROPHYLAXIS
     Dosage: UNK
     Route: 048
     Dates: start: 201912
  9. PREDNISOLON                        /00016201/ [Concomitant]
     Active Substance: PREDNISOLONE
     Indication: RENAL TRANSPLANT
     Dosage: 5 MILLIGRAM
     Route: 048
     Dates: start: 201905
  10. MARCUMAR [Concomitant]
     Active Substance: PHENPROCOUMON
     Indication: FACTOR V LEIDEN MUTATION
     Dosage: UNK (NACH INR)
     Route: 048
     Dates: start: 201606
  11. VALGANCICLOVIR. [Suspect]
     Active Substance: VALGANCICLOVIR
     Indication: ANTIVIRAL PROPHYLAXIS
     Dosage: 450 MILLIGRAM
     Route: 048
     Dates: start: 201905, end: 201908

REACTIONS (2)
  - Agranulocytosis [Recovered/Resolved]
  - Leukopenia [Recovered/Resolved]

NARRATIVE: CASE EVENT DATE: 20190729
